FAERS Safety Report 9285848 (Version 1)
Quarter: 2013Q2

REPORT INFORMATION
  Report Type: Spontaneous
  Country: IT (occurrence: None)
  Receive Date: 20130507
  Receipt Date: 20130507
  Transmission Date: 20140414
  Serious: Yes (Life-Threatening)
  Sender: FDA-Public Use
  Company Number: INT_00257_2013

PATIENT
  Age: 56 Year
  Sex: Male
  Weight: 70 kg

DRUGS (1)
  1. CEFTRIAXONE [Suspect]
     Indication: ANTIBIOTIC PROPHYLAXIS
     Route: 042
     Dates: start: 20130320, end: 20130323

REACTIONS (5)
  - Capillaritis [None]
  - Henoch-Schonlein purpura [None]
  - Oedema peripheral [None]
  - Oedema peripheral [None]
  - Infection [None]
